FAERS Safety Report 4550763-X (Version None)
Quarter: 2004Q4

REPORT INFORMATION
  Report Type: 
  Country: None (occurrence: None)
  Receive Date: 20041217
  Receipt Date: 20040929
  Transmission Date: 20050328
  Serious: No
  Sender: FDA-Public Use
  Company Number: 2004-BP-08987BP(0)

PATIENT
  Age: 61 Year
  Sex: Female

DRUGS (12)
  1. SPIRIVA [Suspect]
     Indication: CHRONIC OBSTRUCTIVE AIRWAYS DISEASE
     Dosage: 18 MCG (18 MCG, 1 IN 1 D) IH
     Route: 055
     Dates: start: 20040828
  2. ADVAIR (SERETIDE MITE) [Concomitant]
  3. ALBUTEROL [Concomitant]
  4. PREDNISONE [Concomitant]
  5. SINGULAIR (MONTELUKAST) [Concomitant]
  6. OXYGEN [Concomitant]
  7. GLUCOPHAGE [Concomitant]
  8. PRILOSEC [Concomitant]
  9. SINEMET [Concomitant]
  10. FOSAMAX [Concomitant]
  11. LASIX [Concomitant]
  12. COZAAR [Concomitant]

REACTIONS (4)
  - CHEILITIS [None]
  - DRY MOUTH [None]
  - HOARSENESS [None]
  - STOMATITIS [None]
